FAERS Safety Report 6766123-7 (Version None)
Quarter: 2010Q2

REPORT INFORMATION
  Report Type: 
  Country: None (occurrence: None)
  Receive Date: 20100609
  Receipt Date: 20100527
  Transmission Date: 20101027
  Serious: Yes (Hospitalization, Other)
  Sender: FDA-Public Use
  Company Number: 237864K09USA

PATIENT
  Age: 40 Year
  Sex: Female

DRUGS (4)
  1. REBIF [Suspect]
     Indication: MULTIPLE SCLEROSIS
     Dosage: 44 MCG, 3 IN 1 WK, SUBCUTANEOUS
     Route: 058
     Dates: start: 20070514
  2. SYNTHROID [Concomitant]
  3. LEXAPRO [Concomitant]
  4. ANAGESIC     (MENTHOL W/METHYL SALICYLATE) [Concomitant]

REACTIONS (14)
  - ACNE [None]
  - ANXIETY [None]
  - BACK PAIN [None]
  - BLOOD PRESSURE INCREASED [None]
  - CRYING [None]
  - DEPRESSION [None]
  - HYPERHIDROSIS [None]
  - INJECTION SITE HAEMATOMA [None]
  - INSOMNIA [None]
  - NECK PAIN [None]
  - NERVOUSNESS [None]
  - ROAD TRAFFIC ACCIDENT [None]
  - SCREAMING [None]
  - THYROID DISORDER [None]
